FAERS Safety Report 9332394 (Version 1)
Quarter: 2013Q2

REPORT INFORMATION
  Report Type: Report from Study
  Country: BR (occurrence: BR)
  Receive Date: 20130606
  Receipt Date: 20130606
  Transmission Date: 20140414
  Serious: Yes (Hospitalization, Other)
  Sender: FDA-Public Use
  Company Number: PHHY2013BR057057

PATIENT
  Age: 32 Year
  Sex: Male

DRUGS (3)
  1. TRILEPTAL [Suspect]
     Indication: MOOD ALTERED
     Dosage: 3 DF, QD
     Route: 048
  2. TRILEPTAL [Suspect]
     Dosage: 3 DF, QD
     Route: 048
     Dates: start: 201303
  3. RIVOTRIL [Concomitant]
     Indication: SLEEP DISORDER
     Dosage: 0.5 DF, QD
     Route: 048
     Dates: start: 201303

REACTIONS (2)
  - Dependence [Recovering/Resolving]
  - Weight increased [Not Recovered/Not Resolved]
